FAERS Safety Report 15812909 (Version 1)
Quarter: 2019Q1

REPORT INFORMATION
  Report Type: Spontaneous
  Country: None (occurrence: US)
  Receive Date: 20190111
  Receipt Date: 20190111
  Transmission Date: 20190417
  Serious: No
  Sender: FDA-Public Use
  Company Number: US-AKRON, INC.-2061087

PATIENT
  Sex: Male

DRUGS (1)
  1. CIPROFLOXACIN OPHTALMIC SOLUTION [Suspect]
     Active Substance: CIPROFLOXACIN
     Route: 047

REACTIONS (2)
  - Dysgeusia [Recovered/Resolved]
  - Rash [Recovered/Resolved]
